FAERS Safety Report 26001466 (Version 1)
Quarter: 2025Q4

REPORT INFORMATION
  Report Type: Report from Study
  Country: AR (occurrence: AR)
  Receive Date: 20251105
  Receipt Date: 20251105
  Transmission Date: 20260118
  Serious: Yes (Death)
  Sender: ABBVIE
  Company Number: AR-ABBVIE-6532613

PATIENT
  Age: 62 Year
  Sex: Female

DRUGS (1)
  1. RINVOQ [Suspect]
     Active Substance: UPADACITINIB
     Indication: Product used for unknown indication
     Dosage: FORM STRENGTH: 15MG X 30 TABLETS
     Route: 048
     Dates: start: 20220927

REACTIONS (1)
  - Death [Fatal]

NARRATIVE: CASE EVENT DATE: 20250601
